FAERS Safety Report 22119645 (Version 2)
Quarter: 2023Q2

REPORT INFORMATION
  Report Type: Report from Study
  Country: GB (occurrence: GB)
  Receive Date: 20230321
  Receipt Date: 20230515
  Transmission Date: 20230722
  Serious: Yes (Other)
  Sender: FDA-Public Use
  Company Number: GB-002147023-NVSC2023GB060042

PATIENT
  Sex: Female

DRUGS (1)
  1. KISQALI [Suspect]
     Active Substance: RIBOCICLIB
     Indication: Product used for unknown indication
     Dosage: UNK
     Route: 065

REACTIONS (15)
  - Haemorrhage [Unknown]
  - Gastroenteritis viral [Unknown]
  - Vulvovaginal discomfort [Unknown]
  - Skin laceration [Unknown]
  - Anal fissure [Unknown]
  - Throat tightness [Unknown]
  - Taste disorder [Unknown]
  - Pain in extremity [Unknown]
  - Hot flush [Unknown]
  - Hyperhidrosis [Unknown]
  - Hypersensitivity [Unknown]
  - Eye pruritus [Unknown]
  - Dyspepsia [Unknown]
  - Nausea [Unknown]
  - Back pain [Unknown]
